FAERS Safety Report 4533707-6 (Version None)
Quarter: 2004Q4

REPORT INFORMATION
  Report Type: 
  Country: None (occurrence: None)
  Receive Date: 20041221
  Receipt Date: 20041220
  Transmission Date: 20050328
  Serious: Yes (Hospitalization)
  Sender: FDA-Public Use
  Company Number: US-GLAXOSMITHKLINE-A0538016A

PATIENT
  Age: 72 Year
  Sex: Female

DRUGS (7)
  1. PAXIL CR [Suspect]
     Indication: DEPRESSION
     Dosage: 25MG PER DAY
     Dates: start: 20040701, end: 20040901
  2. ASPIRIN [Suspect]
  3. XANAX [Concomitant]
  4. POTASSIUM [Concomitant]
  5. VITAMIN C [Concomitant]
  6. THYROID TAB [Concomitant]
  7. TRAZODONE HCL [Concomitant]

REACTIONS (2)
  - DRUG INEFFECTIVE [None]
  - SUICIDE ATTEMPT [None]
